FAERS Safety Report 21332967 (Version 2)
Quarter: 2022Q4

REPORT INFORMATION
  Report Type: Spontaneous
  Country: DE (occurrence: DE)
  Receive Date: 20220914
  Receipt Date: 20221011
  Transmission Date: 20230113
  Serious: Yes (Hospitalization, Other)
  Sender: FDA-Public Use
  Company Number: DE-ROCHE-92895

PATIENT
  Age: 82 Year
  Sex: Female

DRUGS (15)
  1. SULFAMETHOXAZOLE\TRIMETHOPRIM [Suspect]
     Active Substance: SULFAMETHOXAZOLE\TRIMETHOPRIM
     Indication: Pneumonia
     Dosage: 1 DOSAGE FORM
     Route: 048
     Dates: start: 19941020, end: 19941021
  2. HEPARIN [Suspect]
     Active Substance: HEPARIN SODIUM
     Indication: Thrombosis prophylaxis
     Dosage: QD, 15000 (DAILY DOSE), SUBCUTANEOUS
     Route: 058
     Dates: start: 19941017, end: 19941021
  3. ASPIRIN [Suspect]
     Active Substance: ASPIRIN
     Indication: Cardiac failure
     Dosage: 100 MILLIGRAM, QD
     Route: 048
     Dates: end: 19941021
  4. HEPARIN SODIUM [Suspect]
     Active Substance: HEPARIN SODIUM
     Indication: Thrombosis prophylaxis
     Dosage: 15000 (DAILY DOSE), , SUBCUTANEOUS
     Route: 058
     Dates: start: 19941017, end: 19941021
  5. LACTULOSE [Suspect]
     Active Substance: LACTULOSE
     Indication: Constipation
     Dosage: 2 DF, QD
     Route: 048
     Dates: start: 19941020, end: 19941021
  6. LASIX [Suspect]
     Active Substance: FUROSEMIDE
     Indication: Fluid retention
     Dosage: UNK
     Route: 048
     Dates: start: 19941018, end: 19941021
  7. POTASSIUM CARBONATE\POTASSIUM CITRATE [Suspect]
     Active Substance: POTASSIUM CARBONATE\POTASSIUM CITRATE
     Indication: Cardiac failure
     Dosage: UNK
     Route: 048
     Dates: start: 19941017, end: 19941021
  8. POTASSIUM CARBONATE\POTASSIUM CITRATE [Suspect]
     Active Substance: POTASSIUM CARBONATE\POTASSIUM CITRATE
     Dosage: UNK
     Route: 048
  9. DULCOLAX NOS [Suspect]
     Active Substance: BISACODYL OR DOCUSATE SODIUM
     Indication: Constipation
     Dosage: 1 DOSAGE FORM, QD
     Route: 054
     Dates: start: 19941019, end: 19941019
  10. ISMO [Suspect]
     Active Substance: ISOSORBIDE MONONITRATE
     Indication: Cardiac failure
     Dosage: 40 MILLIGRAM, QD
     Route: 048
     Dates: start: 19941017, end: 19941021
  11. ISMO [Suspect]
     Active Substance: ISOSORBIDE MONONITRATE
     Dosage: 20 MILLIGRAM, QD
     Route: 048
     Dates: start: 19941017, end: 19941021
  12. SULFAMETHOXAZOLE\TRIMETHOPRIM [Suspect]
     Active Substance: SULFAMETHOXAZOLE\TRIMETHOPRIM
     Indication: Pneumonia
     Dosage: 1 DOSAGE FORM
     Route: 048
     Dates: start: 19941020, end: 19941021
  13. SULFAMETHOXAZOLE\TRIMETHOPRIM [Suspect]
     Active Substance: SULFAMETHOXAZOLE\TRIMETHOPRIM
     Dosage: 1 DOSAGE FORM
     Route: 048
     Dates: start: 19941020, end: 19941021
  14. POTASSIUM CARBONATE\POTASSIUM CITRATE [Suspect]
     Active Substance: POTASSIUM CARBONATE\POTASSIUM CITRATE
     Indication: Cardiac failure
     Dosage: UNK
     Route: 048
     Dates: start: 19941017, end: 19941021
  15. POTASSIUM CARBONATE\POTASSIUM CITRATE [Suspect]
     Active Substance: POTASSIUM CARBONATE\POTASSIUM CITRATE
     Dosage: UNK
     Route: 048

REACTIONS (3)
  - Stevens-Johnson syndrome [Recovering/Resolving]
  - Leukopenia [Unknown]
  - Blood lactate dehydrogenase increased [Unknown]

NARRATIVE: CASE EVENT DATE: 19941018
